FAERS Safety Report 23777745 (Version 2)
Quarter: 2024Q3

REPORT INFORMATION
  Report Type: Spontaneous
  Country: NL (occurrence: NL)
  Receive Date: 20240424
  Receipt Date: 20240724
  Transmission Date: 20241016
  Serious: No
  Sender: PFIZER
  Company Number: NL-NEOVII_BIOTECH-2024000018

PATIENT
  Age: 14 Year
  Sex: Female

DRUGS (9)
  1. RITUXIMAB [Suspect]
     Active Substance: RITUXIMAB
     Indication: Allogenic stem cell transplantation
     Dosage: 375 MG/M2
  2. RITUXIMAB [Suspect]
     Active Substance: RITUXIMAB
     Indication: Surgical preconditioning
  3. PREDNISONE [Suspect]
     Active Substance: PREDNISONE
     Indication: Prophylaxis against graft versus host disease
     Dosage: 1 MG/KG, 1X/DAY
  4. BUSULFAN [Suspect]
     Active Substance: BUSULFAN
     Indication: Allogenic stem cell transplantation
     Dosage: 90 MG H/L
  5. BUSULFAN [Suspect]
     Active Substance: BUSULFAN
     Indication: Surgical preconditioning
  6. FLUDARABINE [Suspect]
     Active Substance: FLUDARABINE PHOSPHATE
     Indication: Allogenic stem cell transplantation
     Dosage: 160 MG/M2
  7. FLUDARABINE [Suspect]
     Active Substance: FLUDARABINE PHOSPHATE
     Indication: Surgical preconditioning
  8. CYCLOSPORINE [Suspect]
     Active Substance: CYCLOSPORINE
     Indication: Prophylaxis against graft versus host disease
     Dosage: 200-250 MG/L/DAY
  9. MYCOPHENOLATE MOFETIL [Suspect]
     Active Substance: MYCOPHENOLATE MOFETIL
     Indication: Prophylaxis against graft versus host disease
     Dosage: 50 MG/KG, 1X/DAY

REACTIONS (1)
  - Off label use [Unknown]
